FAERS Safety Report 4648733-6 (Version None)
Quarter: 2005Q2

REPORT INFORMATION
  Report Type: 
  Country: None (occurrence: None)
  Receive Date: 20050427
  Receipt Date: 20050413
  Transmission Date: 20051028
  Serious: Yes (Hospitalization)
  Sender: FDA-Public Use
  Company Number: DSA_26302_2005

PATIENT
  Sex: Male

DRUGS (4)
  1. TAVOR [Suspect]
     Dosage: 10 MG ONCE PO
     Route: 048
     Dates: start: 20050409, end: 20050409
  2. ALCOHOL [Suspect]
     Dosage: DF ONCE PO
     Route: 048
     Dates: start: 20050409, end: 20050409
  3. DOLORMIN [Suspect]
     Dosage: VAR ONCE PO
     Route: 048
     Dates: start: 20050409, end: 20050409
  4. ZOLPIDEM TARTRATE [Suspect]
     Dosage: 100 MG ONCE PO
     Route: 048
     Dates: start: 20050409, end: 20050409

REACTIONS (4)
  - ALCOHOL USE [None]
  - INTENTIONAL MISUSE [None]
  - MULTIPLE DRUG OVERDOSE [None]
  - VOMITING [None]
